FAERS Safety Report 4672727-8 (Version None)
Quarter: 2005Q2

REPORT INFORMATION
  Report Type: 
  Country: None (occurrence: None)
  Receive Date: 20050524
  Receipt Date: 20040831
  Transmission Date: 20051028
  Serious: Yes (Other)
  Sender: FDA-Public Use
  Company Number: US-GLAXOSMITHKLINE-A0524072A

PATIENT

DRUGS (2)
  1. DIGIBIND [Suspect]
     Indication: THERAPEUTIC AGENT TOXICITY
  2. DIGOXIN [Suspect]

REACTIONS (2)
  - CARDIOACTIVE DRUG LEVEL DECREASED [None]
  - THERAPEUTIC AGENT TOXICITY [None]
